FAERS Safety Report 13761083 (Version 2)
Quarter: 2017Q4

REPORT INFORMATION
  Report Type: Spontaneous
  Country: KR (occurrence: KR)
  Receive Date: 20170717
  Receipt Date: 20171020
  Transmission Date: 20180320
  Serious: Yes (Other)
  Sender: FDA-Public Use
  Company Number: KR-009507513-1707KOR004109

PATIENT
  Age: 42 Year
  Sex: Female
  Weight: 62.1 kg

DRUGS (16)
  1. NOXAFIL [Suspect]
     Active Substance: POSACONAZOLE
     Dosage: 300 MG, TWICE A DAY
     Route: 048
     Dates: start: 20170524, end: 20170524
  2. MUCOSTA [Concomitant]
     Active Substance: REBAMIPIDE
     Indication: PROPHYLAXIS
     Dosage: 100 MG, THREE TIMES A DAY
     Route: 048
     Dates: start: 20170512, end: 20170623
  3. NOXAFIL [Suspect]
     Active Substance: POSACONAZOLE
     Indication: PROPHYLAXIS
     Dosage: 300 MG, TWICE A DAY
     Route: 048
     Dates: start: 20170513, end: 20170513
  4. NOXAFIL [Suspect]
     Active Substance: POSACONAZOLE
     Dosage: 300 MG, ONCE A DAY
     Route: 048
     Dates: start: 20170514, end: 20170520
  5. NOXAFIL [Suspect]
     Active Substance: POSACONAZOLE
     Dosage: 300 MG, ONCE A DAY
     Route: 048
     Dates: start: 20170525, end: 20170608
  6. TAZOPERAN [Concomitant]
     Indication: ANTIBIOTIC PROPHYLAXIS
  7. DENOGAN [Concomitant]
     Active Substance: PROPACETAMOL HYDROCHLORIDE
     Indication: PYREXIA
     Dosage: 1 G, AS NEEDED
     Route: 042
     Dates: start: 20170510, end: 20170510
  8. IDARUBICIN HYDROCHLORIDE. [Concomitant]
     Active Substance: IDARUBICIN HYDROCHLORIDE
     Indication: ACUTE MYELOID LEUKAEMIA
     Dosage: 19.3 MG, QOD
     Route: 042
     Dates: start: 20170512, end: 20170516
  9. RABIET [Concomitant]
     Indication: PROPHYLAXIS
     Dosage: 10 MG, ONCE DAILY
     Route: 048
     Dates: start: 20170511, end: 20170523
  10. VESANOID [Concomitant]
     Active Substance: TRETINOIN
     Indication: ACUTE MYELOID LEUKAEMIA
     Dosage: 10 MG, ONCE DAILY
     Route: 048
     Dates: start: 20170510, end: 20170623
  11. TAZOPERAN [Concomitant]
     Indication: TONSILLITIS
     Dosage: 4.5 G, THREE TIMES A DAY
     Route: 042
     Dates: start: 20170510, end: 20170517
  12. LASIX [Concomitant]
     Active Substance: FUROSEMIDE
     Indication: WEIGHT INCREASED
     Dosage: 20 MG, AS NEEDED
     Route: 042
     Dates: start: 20170512, end: 20170606
  13. HEXAMEDINE [Concomitant]
     Indication: STOMATITIS
     Dosage: 1 SIP, ONCE DAILY, ROUTE: GARGLE
     Route: 050
     Dates: start: 20170511, end: 20170608
  14. ZYLORIC [Concomitant]
     Active Substance: ALLOPURINOL
     Indication: ACUTE MYELOID LEUKAEMIA
     Dosage: 100 MG, THREE TIMES A DAY
     Route: 048
     Dates: start: 20170511, end: 20170516
  15. NASEA [Concomitant]
     Active Substance: RAMOSETRON HYDROCHLORIDE
     Indication: PROPHYLAXIS OF NAUSEA AND VOMITING
     Dosage: 0.3 MG, ONCE DAILY
     Route: 042
     Dates: start: 20170512, end: 20170512
  16. PENIRAMIN [Concomitant]
     Indication: PROPHYLAXIS
     Dosage: 4 MG, AS NEEDED
     Route: 042
     Dates: start: 20170510, end: 20170602

REACTIONS (11)
  - Cough [Recovered/Resolved]
  - Catheter site pain [Recovered/Resolved]
  - Haemorrhoids [Recovered/Resolved]
  - Pruritus genital [Recovered/Resolved]
  - Hypokalaemia [Recovered/Resolved]
  - Pyrexia [Recovered/Resolved]
  - Conjunctival hyperaemia [Recovered/Resolved]
  - Headache [Recovered/Resolved]
  - Herpes virus infection [Recovered/Resolved]
  - Acute promyelocytic leukaemia differentiation syndrome [Recovered/Resolved]
  - Hypophosphatasia [Recovered/Resolved]

NARRATIVE: CASE EVENT DATE: 20170513
